FAERS Safety Report 7777359-0 (Version None)
Quarter: 2011Q3

REPORT INFORMATION
  Report Type: 
  Country: None (occurrence: None)
  Receive Date: 20110922
  Receipt Date: 20110907
  Transmission Date: 20111222
  Serious: Yes (Other)
  Sender: FDA-Public Use
  Company Number: TUK2011A00138

PATIENT
  Age: 78 Year
  Sex: Male

DRUGS (3)
  1. METFORMIN HCL [Concomitant]
  2. ACTOS [Suspect]
     Indication: PRODUCT USED FOR UNKNOWN INDICATION
  3. GLICLAZIDE (GLICLAZIDE) [Concomitant]

REACTIONS (1)
  - BLADDER NEOPLASM [None]
